FAERS Safety Report 5065646-9 (Version None)
Quarter: 2006Q3

REPORT INFORMATION
  Report Type: 
  Country: None (occurrence: None)
  Receive Date: 20060714
  Receipt Date: 20060516
  Transmission Date: 20061208
  Serious: No
  Sender: FDA-Public Use
  Company Number: 2006SP002081

PATIENT
  Age: 64 Year
  Sex: Male
  Weight: 95.2554 kg

DRUGS (4)
  1. LUNESTA [Suspect]
     Indication: INSOMNIA
     Dosage: 3 MG;HS;ORAL
     Route: 048
     Dates: start: 20060401, end: 20060515
  2. PROSCAR [Concomitant]
  3. TAMSULOSIN HCL [Concomitant]
  4. NEXIUM [Concomitant]

REACTIONS (4)
  - ABDOMINAL DISTENSION [None]
  - ANOREXIA [None]
  - DIARRHOEA [None]
  - DYSGEUSIA [None]
